FAERS Safety Report 5448385-1 (Version None)
Quarter: 2007Q3

REPORT INFORMATION
  Report Type: 
  Country: None (occurrence: None)
  Receive Date: 20070911
  Receipt Date: 20070904
  Transmission Date: 20080115
  Serious: Yes (Hospitalization)
  Sender: FDA-Public Use
  Company Number: US-ELI_LILLY_AND_COMPANY-US200708005790

PATIENT
  Sex: Female

DRUGS (2)
  1. ZYPREXA [Suspect]
  2. PROLIXIN [Concomitant]

REACTIONS (1)
  - HOSPITALISATION [None]
